FAERS Safety Report 8473450-4 (Version None)
Quarter: 2012Q2

REPORT INFORMATION
  Report Type: 
  Country: None (occurrence: None)
  Receive Date: 20120625
  Receipt Date: 20120625
  Transmission Date: 20120825
  Serious: No
  Sender: FDA-Public Use
  Company Number: None

PATIENT
  Age: 63 Year
  Sex: Female

DRUGS (1)
  1. SPRYCEL [Suspect]
     Indication: CHRONIC MYELOID LEUKAEMIA
     Dosage: 100MG DAILY PO
     Route: 048
     Dates: start: 20120620

REACTIONS (4)
  - PAIN IN JAW [None]
  - HEADACHE [None]
  - PRODUCT QUALITY ISSUE [None]
  - TOOTHACHE [None]
